FAERS Safety Report 6920635-1 (Version None)
Quarter: 2010Q3

REPORT INFORMATION
  Report Type: 
  Country: None (occurrence: None)
  Receive Date: 20100812
  Receipt Date: 20100810
  Transmission Date: 20110219
  Serious: Yes (Other)
  Sender: FDA-Public Use
  Company Number: US-ASTRAZENECA-2008UW04655

PATIENT
  Age: 549 Month
  Sex: Female
  Weight: 76.2 kg

DRUGS (7)
  1. SEROQUEL [Suspect]
     Indication: BIPOLAR DISORDER
     Route: 048
     Dates: start: 20050801
  2. SEROQUEL [Suspect]
     Dosage: 25-800 MG
     Route: 048
     Dates: start: 20050824
  3. SEROQUEL [Suspect]
     Dosage: 200-400 MG
     Route: 048
     Dates: start: 20070416
  4. EFFEXOR XR [Concomitant]
     Dates: start: 20061219
  5. LAMICTAL [Concomitant]
     Dates: start: 20061219
  6. METFORMIN HCL [Concomitant]
     Dosage: 500-750 MG
     Dates: start: 20070416
  7. CLOZARIL [Concomitant]
     Dates: start: 20050801

REACTIONS (6)
  - BLOOD CHOLESTEROL INCREASED [None]
  - DIABETIC COMPLICATION [None]
  - GALLBLADDER DISORDER [None]
  - HEART RATE IRREGULAR [None]
  - HYPERLIPIDAEMIA [None]
  - TYPE 2 DIABETES MELLITUS [None]
